FAERS Safety Report 15559692 (Version 1)
Quarter: 2018Q4

REPORT INFORMATION
  Report Type: Spontaneous
  Country: US (occurrence: US)
  Receive Date: 20181029
  Receipt Date: 20181029
  Transmission Date: 20190205
  Serious: No
  Sender: FDA-Public Use
  Company Number: US-JNJFOC-20180933274

PATIENT
  Age: 62 Year
  Sex: Female
  Weight: 53.52 kg

DRUGS (12)
  1. DURAGESIC [Suspect]
     Active Substance: FENTANYL
     Indication: INTERVERTEBRAL DISC PROTRUSION
     Dosage: STRENGTH: 50 MICROGRAM PER HOUR
     Route: 062
     Dates: end: 1998
  2. DURAGESIC [Suspect]
     Active Substance: FENTANYL
     Indication: PAIN
     Dosage: STRENGTH: 100 MCG PER HOUR
     Route: 062
     Dates: start: 199805, end: 1998
  3. DURAGESIC [Suspect]
     Active Substance: FENTANYL
     Indication: PAIN
     Dosage: STRENGTH: 75 MICROGRAM PER HOUR
     Route: 062
     Dates: end: 1998
  4. DURAGESIC [Suspect]
     Active Substance: FENTANYL
     Indication: PAIN
     Dosage: STRENGTH: 50 MICROGRAM PER HOUR
     Route: 062
     Dates: end: 1998
  5. DURAGESIC [Suspect]
     Active Substance: FENTANYL
     Indication: PAIN
     Dosage: STRENGTH: 12.5 MICROGRAM PER HOUR
     Route: 062
     Dates: end: 1998
  6. DURAGESIC [Suspect]
     Active Substance: FENTANYL
     Indication: INTERVERTEBRAL DISC PROTRUSION
     Dosage: STRENGTH: 12.5 MICROGRAM PER HOUR
     Route: 062
     Dates: end: 1998
  7. DIOVAN HCT [Concomitant]
     Active Substance: HYDROCHLOROTHIAZIDE\VALSARTAN
     Indication: HYPERTENSION
     Route: 048
  8. DURAGESIC [Suspect]
     Active Substance: FENTANYL
     Indication: INTERVERTEBRAL DISC PROTRUSION
     Dosage: STRENGTH: 75 MICROGRAM PER HOUR
     Route: 062
     Dates: end: 1998
  9. DURAGESIC [Suspect]
     Active Substance: FENTANYL
     Indication: PAIN
     Dosage: STRENGTH: 25 MICROGRAM PER HOUR
     Route: 062
  10. DURAGESIC [Suspect]
     Active Substance: FENTANYL
     Indication: INTERVERTEBRAL DISC PROTRUSION
     Dosage: STRENGTH: 25 MICROGRAM PER HOUR
     Route: 062
  11. DURAGESIC [Suspect]
     Active Substance: FENTANYL
     Indication: INTERVERTEBRAL DISC PROTRUSION
     Dosage: STRENGTH: 100 MCG PER HOUR
     Route: 062
     Dates: start: 199805, end: 1998
  12. CRESTOR [Concomitant]
     Active Substance: ROSUVASTATIN CALCIUM
     Indication: BLOOD CHOLESTEROL INCREASED
     Dosage: STRENGTH: 20 MILIGRAM
     Route: 048

REACTIONS (7)
  - Impaired driving ability [Unknown]
  - Tremor [Unknown]
  - Feeling jittery [Unknown]
  - Pain [Unknown]
  - Somnolence [Unknown]
  - Depression [Unknown]
  - Pain [Unknown]

NARRATIVE: CASE EVENT DATE: 201605
